FAERS Safety Report 15035830 (Version 1)
Quarter: 2018Q2

REPORT INFORMATION
  Report Type: Spontaneous
  Country: ES (occurrence: ES)
  Receive Date: 20180620
  Receipt Date: 20180620
  Transmission Date: 20180711
  Serious: Yes (Other)
  Sender: FDA-Public Use
  Company Number: ES-PFIZER INC-2018243178

PATIENT
  Age: 65 Year
  Sex: Male

DRUGS (5)
  1. DOCETAXEL. [Suspect]
     Active Substance: DOCETAXEL
     Dosage: 75 MG/M2, EVERY 3 WEEKS
     Route: 051
     Dates: start: 201202, end: 201202
  2. ENANTONE LP [Concomitant]
     Active Substance: LEUPROLIDE ACETATE
     Dosage: UNK, SEMESTRAL
     Dates: start: 201011
  3. ZOLEDRONIC ACID [Concomitant]
     Active Substance: ZOLEDRONIC ACID
     Dosage: 4 MG, EVERY 3 WEEKS
  4. BICALUTAMIDE. [Concomitant]
     Active Substance: BICALUTAMIDE
     Dosage: 50 MG, DAILY
  5. DOCETAXEL. [Suspect]
     Active Substance: DOCETAXEL
     Indication: PROSTATE CANCER
     Dosage: 75 MG/M2, EVERY 3 WEEKS
     Route: 051
     Dates: start: 201110, end: 201110

REACTIONS (5)
  - Enteritis [Unknown]
  - Type IV hypersensitivity reaction [Unknown]
  - Neutropenia [Unknown]
  - Asthenia [Unknown]
  - Rash maculo-papular [Unknown]
